FAERS Safety Report 4289820-4 (Version None)
Quarter: 2004Q1

REPORT INFORMATION
  Report Type: 
  Country: None (occurrence: None)
  Receive Date: 20040206
  Receipt Date: 20040126
  Transmission Date: 20041129
  Serious: Yes (Death, Life-Threatening, Hospitalization)
  Sender: FDA-Public Use
  Company Number: UK032636

PATIENT
  Age: 80 Year
  Sex: Female
  Weight: 42.2 kg

DRUGS (9)
  1. ARANESP [Suspect]
     Indication: DIALYSIS
     Dosage: 40 MCG, WEEKLY, IV
     Route: 042
     Dates: start: 20021223
  2. NITROGLYCERIN [Concomitant]
  3. IRBESARTAN [Concomitant]
  4. SEVELAMER HCL [Concomitant]
  5. IRON [Concomitant]
  6. PANTOPRAZOLE [Concomitant]
  7. SUCRALFATE [Concomitant]
  8. CALCIUM CARBONATE [Concomitant]
  9. SERTRALINE HCL [Concomitant]

REACTIONS (2)
  - CEREBRAL ARTERY OCCLUSION [None]
  - CEREBROVASCULAR ACCIDENT [None]
